FAERS Safety Report 9720098 (Version 1)
Quarter: 2013Q4

REPORT INFORMATION
  Report Type: Spontaneous
  Country: ES (occurrence: ES)
  Receive Date: 20131128
  Receipt Date: 20131128
  Transmission Date: 20140711
  Serious: Yes (Death, Life-Threatening, Hospitalization)
  Sender: FDA-Public Use
  Company Number: ES-MERCK-1311ESP007264

PATIENT
  Age: 7 Year
  Sex: Male
  Weight: 28 kg

DRUGS (8)
  1. CANCIDAS [Suspect]
     Dosage: 500 MG IN 100 ML OF PHYSIOLOGICAL SERUM IN 1 HOUR
     Dates: start: 20130228
  2. AMBISOME [Interacting]
     Indication: ZYGOMYCOSIS
     Dosage: 280MG, QD
     Route: 042
     Dates: start: 20130228
  3. AMBISOME [Interacting]
     Dosage: 50MG DILUTED IN 12ML OF WATER FOR INJECTION,  NEBULIZED/48H
     Route: 055
     Dates: start: 20130228
  4. NOXAFIL [Interacting]
     Indication: ZYGOMYCOSIS
     Dosage: 200 MG/6HOURS WITH FATTY FOOD (1 OIL SPOON)
     Route: 048
     Dates: start: 20130228, end: 20130314
  5. MEROPENEM [Concomitant]
     Indication: ZYGOMYCOSIS
     Dosage: 1000MG/8H
     Route: 042
     Dates: start: 20130228
  6. CLARITHROMYCIN [Concomitant]
     Indication: ZYGOMYCOSIS
     Dosage: 175 MG, BID, 175MG/12H
     Route: 042
     Dates: start: 20130228
  7. OMEPRAZOLE [Concomitant]
     Indication: PROPHYLAXIS AGAINST GASTROINTESTINAL ULCER
     Dosage: 20 MG, QD, 20MG/24H
     Route: 042
     Dates: start: 20130228
  8. LEVEMIR [Concomitant]
     Indication: TYPE 1 DIABETES MELLITUS
     Dosage: INJECTABLE SOLUTION IN A PRELOADED PEN (FLEXPEN
     Route: 058
     Dates: start: 20130228

REACTIONS (4)
  - Nephropathy [Recovering/Resolving]
  - Hypokalaemia [Recovered/Resolved]
  - Hypomagnesaemia [Recovered/Resolved]
  - Pulmonary haemorrhage [Fatal]
